FAERS Safety Report 15104387 (Version 1)
Quarter: 2018Q3

REPORT INFORMATION
  Report Type: Spontaneous
  Country: FR (occurrence: FR)
  Receive Date: 20180703
  Receipt Date: 20180703
  Transmission Date: 20181010
  Serious: Yes (Other)
  Sender: FDA-Public Use
  Company Number: FR-PFIZER INC-2018263809

PATIENT
  Age: 55 Year
  Sex: Female

DRUGS (6)
  1. SOLU?MEDROL [Suspect]
     Active Substance: METHYLPREDNISOLONE SODIUM SUCCINATE
     Indication: PREMEDICATION
     Dosage: 120 MG, UNK
     Route: 042
     Dates: start: 20180427, end: 20180427
  2. EMEND [Suspect]
     Active Substance: APREPITANT
     Indication: PREMEDICATION
     Dosage: 125 MG, UNK
     Route: 048
     Dates: start: 20180427, end: 20180427
  3. SETOFILM [Suspect]
     Active Substance: ONDANSETRON
     Indication: PREMEDICATION
     Dosage: 8 MG, UNK
     Route: 048
     Dates: start: 20180427, end: 20180427
  4. AVASTIN [Concomitant]
     Active Substance: BEVACIZUMAB
  5. POLARAMINE [Suspect]
     Active Substance: DEXCHLORPHENIRAMINE MALEATE
     Indication: PREMEDICATION
     Dosage: 5 MG, UNK
     Route: 042
     Dates: start: 20180427, end: 20180427
  6. AZANTAC [Suspect]
     Active Substance: RANITIDINE HYDROCHLORIDE
     Indication: PREMEDICATION
     Dosage: 50 MG, UNK
     Route: 042
     Dates: start: 20180427, end: 20180427

REACTIONS (3)
  - Respiratory disorder [Recovered/Resolved]
  - Rash erythematous [Recovered/Resolved]
  - Hypersensitivity [Recovered/Resolved]

NARRATIVE: CASE EVENT DATE: 20180427
